FAERS Safety Report 6488094-3 (Version None)
Quarter: 2009Q4

REPORT INFORMATION
  Report Type: 
  Country: None (occurrence: None)
  Receive Date: 20091210
  Receipt Date: 20091130
  Transmission Date: 20100525
  Serious: Yes (Hospitalization)
  Sender: FDA-Public Use
  Company Number: GB-TEVA-213828ISR

PATIENT
  Sex: Female

DRUGS (2)
  1. AZILECT [Suspect]
     Route: 048
     Dates: start: 20090201
  2. AZILECT [Suspect]
     Route: 048
     Dates: start: 20090901

REACTIONS (2)
  - EYE ROLLING [None]
  - FEELING ABNORMAL [None]
